FAERS Safety Report 9351098 (Version 5)
Quarter: 2015Q3

REPORT INFORMATION
  Report Type: Spontaneous
  Country: US (occurrence: US)
  Receive Date: 20130617
  Receipt Date: 20150821
  Transmission Date: 20151125
  Serious: Yes (Hospitalization)
  Sender: FDA-Public Use
  Company Number: US-BAYER-2013-072627

PATIENT
  Age: 22 Year
  Sex: Female
  Weight: 104.31 kg

DRUGS (6)
  1. MIRENA [Suspect]
     Active Substance: LEVONORGESTREL
     Indication: CONTRACEPTION
     Dosage: 20 MCG/24HR, CONT
     Route: 015
     Dates: start: 20080924, end: 20081107
  2. AVELOX [Concomitant]
     Active Substance: MOXIFLOXACIN HYDROCHLORIDE
  3. PERCOCET [Concomitant]
     Active Substance: ACETAMINOPHEN\OXYCODONE HYDROCHLORIDE
  4. MORPHINE [Concomitant]
     Active Substance: MORPHINE
  5. FLAGYL [Concomitant]
     Active Substance: METRONIDAZOLE\METRONIDAZOLE HYDROCHLORIDE
  6. MOTRIN [Concomitant]
     Active Substance: IBUPROFEN

REACTIONS (6)
  - Pelvic inflammatory disease [Recovering/Resolving]
  - Gastrointestinal oedema [None]
  - Injury [None]
  - Polycystic ovaries [None]
  - Uterine scar [None]
  - Pain [None]

NARRATIVE: CASE EVENT DATE: 2008
